FAERS Safety Report 22116527 (Version 1)
Quarter: 2023Q1

REPORT INFORMATION
  Report Type: Spontaneous
  Country: MX (occurrence: None)
  Receive Date: 20230320
  Receipt Date: 20230320
  Transmission Date: 20230417
  Serious: Yes (Death)
  Sender: FDA-Public Use
  Company Number: MX-Merck Healthcare KGaA-9390444

PATIENT
  Age: 34 Year
  Sex: Female

DRUGS (1)
  1. CLADRIBINE [Suspect]
     Active Substance: CLADRIBINE
     Indication: Relapsing-remitting multiple sclerosis
     Dosage: FIRST WEEK THERAPY
     Dates: start: 202203

REACTIONS (3)
  - Seizure [Fatal]
  - Urinary tract infection [Fatal]
  - Respiratory tract infection [Fatal]
